FAERS Safety Report 8850340 (Version 1)
Quarter: 2012Q4

REPORT INFORMATION
  Report Type: 
  Country: US (occurrence: US)
  Receive Date: 20121019
  Receipt Date: 20121019
  Transmission Date: 20130627
  Serious: Yes (Hospitalization)
  Sender: FDA-Public Use
  Company Number: US-PFIZER INC-2012260536

PATIENT
  Sex: Female

DRUGS (2)
  1. ADVIL [Suspect]
     Indication: HEADACHE
     Dosage: 3-4 tablets in a day
     Route: 048
     Dates: start: 2012
  2. ADVIL [Suspect]
     Indication: BACK PAIN

REACTIONS (2)
  - Vomiting [Unknown]
  - Haemoptysis [Unknown]
